FAERS Safety Report 4720913-0 (Version None)
Quarter: 2005Q3

REPORT INFORMATION
  Report Type: 
  Country: None (occurrence: None)
  Receive Date: 20050720
  Receipt Date: 20050705
  Transmission Date: 20060218
  Serious: Yes (Disabling)
  Sender: FDA-Public Use
  Company Number: 2005-0008481

PATIENT
  Age: 26 Year
  Sex: Male
  Weight: 50 kg

DRUGS (4)
  1. VIREAD [Suspect]
     Indication: HIV INFECTION
     Dosage: 300 MG, 1 IN 1 D, ORAL
     Route: 048
     Dates: start: 20050110
  2. EPIVIR [Concomitant]
  3. NORVIR [Concomitant]
  4. REYATAZ [Concomitant]

REACTIONS (3)
  - ABNORMAL BEHAVIOUR [None]
  - AGGRESSION [None]
  - SUICIDAL IDEATION [None]
